FAERS Safety Report 7419925-8 (Version None)
Quarter: 2011Q2

REPORT INFORMATION
  Report Type: 
  Country: None (occurrence: None)
  Receive Date: 20110418
  Receipt Date: 20110408
  Transmission Date: 20111010
  Serious: Yes (Hospitalization)
  Sender: FDA-Public Use
  Company Number: DE-BIOGENIDEC-2011BI002334

PATIENT
  Age: 39 Year
  Sex: Female
  Weight: 55 kg

DRUGS (6)
  1. LAMOTRIGINE [Concomitant]
     Indication: EPILEPSY
     Route: 048
     Dates: start: 20050715
  2. TYSABRI [Suspect]
     Route: 042
     Dates: start: 20101214
  3. CITALOPRAM HYDROBROMIDE [Concomitant]
     Indication: DEPRESSION
     Route: 048
     Dates: start: 20060414
  4. TYSABRI [Suspect]
     Indication: MULTIPLE SCLEROSIS
     Route: 042
     Dates: start: 20070711, end: 20101104
  5. LEVOTHYROXINE SODIUM [Concomitant]
     Indication: HYPOTHYROIDISM
     Route: 048
     Dates: start: 20011110
  6. TRIMIPRAMINE MALEATE [Concomitant]
     Indication: DEPRESSION
     Route: 048
     Dates: start: 20091111

REACTIONS (2)
  - MENORRHAGIA [None]
  - GASTROINTESTINAL DISORDER POSTOPERATIVE [None]
